FAERS Safety Report 6294833-7 (Version None)
Quarter: 2009Q3

REPORT INFORMATION
  Report Type: 
  Country: None (occurrence: None)
  Receive Date: 20090803
  Receipt Date: 20090723
  Transmission Date: 20100115
  Serious: Yes (Disabling, Other)
  Sender: FDA-Public Use
  Company Number: PHHY2009AU27201

PATIENT
  Age: 63 Year
  Sex: Female

DRUGS (7)
  1. ACLASTA [Suspect]
     Dosage: 1 DF, QD
     Dates: start: 20090622
  2. CRESTOR [Concomitant]
     Route: 065
  3. ZOTON [Concomitant]
     Route: 065
  4. RETIN-A [Concomitant]
     Route: 065
  5. ESTRADERM [Concomitant]
     Route: 065
  6. MINOCYCLINE HCL [Concomitant]
     Route: 065
  7. NILSTAT [Concomitant]
     Route: 065

REACTIONS (2)
  - MYALGIA [None]
  - TENDONITIS [None]
